FAERS Safety Report 6387661-5 (Version None)
Quarter: 2009Q3

REPORT INFORMATION
  Report Type: 
  Country: None (occurrence: None)
  Receive Date: 20090930
  Receipt Date: 20090915
  Transmission Date: 20100115
  Serious: Yes (Death)
  Sender: FDA-Public Use
  Company Number: 2009002812

PATIENT
  Age: 77 Year
  Sex: Male
  Weight: 54.2 kg

DRUGS (10)
  1. ERLOTINIB HYDROCHLORIDE [Suspect]
     Indication: RENAL CANCER
     Dosage: (150 MG, QD), ORAL
     Route: 048
     Dates: start: 20090714, end: 20090903
  2. SUNITINIB [Suspect]
     Indication: RENAL CELL CARCINOMA
     Dosage: (50 MG, QD), ORAL
     Route: 048
     Dates: start: 20090714, end: 20090903
  3. ACETAMINOPHEN [Concomitant]
  4. ASPIRIN [Concomitant]
  5. ATENOLOL [Concomitant]
  6. LIPITOR [Concomitant]
  7. MINOCYCLINE HCL [Concomitant]
  8. OXYCONTIN [Concomitant]
  9. OXYCODONE HCL [Concomitant]
  10. KLOR-CON [Concomitant]

REACTIONS (1)
  - AORTIC ANEURYSM RUPTURE [None]
